FAERS Safety Report 8525495-3 (Version None)
Quarter: 2012Q3

REPORT INFORMATION
  Report Type: 
  Country: None (occurrence: None)
  Receive Date: 20120720
  Receipt Date: 20120711
  Transmission Date: 20120928
  Serious: Yes (Hospitalization)
  Sender: FDA-Public Use
  Company Number: US-BRISTOL-MYERS SQUIBB COMPANY-16761827

PATIENT
  Age: 51 Year
  Sex: Female
  Weight: 39 kg

DRUGS (11)
  1. MESNA [Suspect]
     Indication: ACUTE LYMPHOCYTIC LEUKAEMIA
     Dosage: LAST DOSE ON 7APR2012
     Route: 042
     Dates: start: 20120405
  2. CYTARABINE [Suspect]
     Indication: ACUTE LYMPHOCYTIC LEUKAEMIA
     Dosage: LAST DOSE ON 15MAY2012
     Route: 042
     Dates: start: 20120405
  3. VINCRISTINE SULFATE [Suspect]
     Indication: ACUTE LYMPHOCYTIC LEUKAEMIA
     Dosage: LAST DOSE :15APR2012
     Route: 042
     Dates: start: 20120405
  4. CYCLOPHOSPHAMIDE [Suspect]
     Indication: ACUTE LYMPHOCYTIC LEUKAEMIA
     Dosage: LAST DOSE ON 8APR2012
     Route: 042
     Dates: start: 20120405
  5. SPRYCEL [Suspect]
     Indication: ACUTE LYMPHOCYTIC LEUKAEMIA
     Route: 048
     Dates: start: 20120405, end: 20120521
  6. METHOTREXATE [Suspect]
     Indication: ACUTE LYMPHOCYTIC LEUKAEMIA
     Dosage: LAST DOSE ON 11MAY2012
     Route: 042
     Dates: start: 20120405
  7. DOXORUBICIN HCL [Suspect]
     Indication: ACUTE LYMPHOCYTIC LEUKAEMIA
     Dosage: LAST DOSE ON 08APR12
     Route: 042
     Dates: start: 20120405
  8. METHYLPREDNISOLONE [Suspect]
     Indication: ACUTE LYMPHOCYTIC LEUKAEMIA
     Dosage: LAST DOSE ON 14MAY12
     Route: 042
     Dates: start: 20120405, end: 20120514
  9. DEXAMETHASONE [Suspect]
     Indication: ACUTE LYMPHOCYTIC LEUKAEMIA
     Dosage: LAST DOSE ON 17APR2012
     Route: 042
     Dates: start: 20120405
  10. FILGRASTIM [Suspect]
     Indication: ACUTE LYMPHOCYTIC LEUKAEMIA
     Dosage: LAST DOSE ON 24APR2012
     Route: 058
     Dates: start: 20120405
  11. LEUCOVORIN CALCIUM [Suspect]
     Indication: ACUTE LYMPHOCYTIC LEUKAEMIA
     Dosage: LAST DOSE:14MAY2012
     Route: 042
     Dates: start: 20120405

REACTIONS (4)
  - SUBDURAL HAEMATOMA [None]
  - PLEURAL EFFUSION [None]
  - PURPURA [None]
  - HYDROPNEUMOTHORAX [None]
